FAERS Safety Report 9143203 (Version 2)
Quarter: 2013Q2

REPORT INFORMATION
  Report Type: Spontaneous
  Country: DE (occurrence: DE)
  Receive Date: 20130306
  Receipt Date: 20130515
  Transmission Date: 20140414
  Serious: Yes (Other)
  Sender: FDA-Public Use
  Company Number: DE-009507513-2010SP009007

PATIENT
  Age: 29 Year
  Sex: Female
  Weight: 71 kg

DRUGS (3)
  1. IMPLANON [Suspect]
     Dosage: UNK
     Dates: start: 200102, end: 200402
  2. IMPLANON [Suspect]
     Dosage: UNK
     Dates: start: 200402, end: 20070208
  3. IMPLANON [Suspect]
     Dosage: UNK
     Dates: start: 20070208

REACTIONS (4)
  - Infertility female [Not Recovered/Not Resolved]
  - Incorrect drug administration duration [Not Recovered/Not Resolved]
  - Menstruation irregular [Not Recovered/Not Resolved]
  - Medical device complication [Not Recovered/Not Resolved]
